FAERS Safety Report 18483630 (Version 2)
Quarter: 2020Q4

REPORT INFORMATION
  Report Type: Spontaneous
  Country: US (occurrence: US)
  Receive Date: 20201110
  Receipt Date: 20201120
  Transmission Date: 20210114
  Serious: No
  Sender: FDA-Public Use
  Company Number: US-HORIZON-2020HZN00520

PATIENT
  Age: 69 Year
  Sex: Female
  Weight: 56.69 kg

DRUGS (13)
  1. CLARITIN [Concomitant]
     Active Substance: LORATADINE
  2. SODIUM CHLORIDE 0.9% [Concomitant]
     Active Substance: SODIUM CHLORIDE
  3. CYMBALTA [Concomitant]
     Active Substance: DULOXETINE HYDROCHLORIDE
     Dosage: 60 MG CAPSULE DR
  4. MESTINON 180 MG [Concomitant]
  5. LISINOPRIL. [Concomitant]
     Active Substance: LISINOPRIL
     Dosage: 10 MG TABLET
  6. TEPEZZA [Suspect]
     Active Substance: TEPROTUMUMAB-TRBW
     Indication: ENDOCRINE OPHTHALMOPATHY
     Dosage: 1254 MG TOTAL IV, DILUTE TEPEZZA VIALS WITH 10 ML STERILE WATER. 26.3 ML = 1254 MG. WITHDRAW 26....
     Route: 050
     Dates: start: 20200918
  7. SALINE [Concomitant]
     Active Substance: SODIUM CHLORIDE
  8. XIIDRA [Concomitant]
     Active Substance: LIFITEGRAST
  9. LIPITOR [Concomitant]
     Active Substance: ATORVASTATIN CALCIUM
  10. DEXILANT [Concomitant]
     Active Substance: DEXLANSOPRAZOLE
     Dosage: 60 MG CAP DR BP
  11. STERILE WATER [Concomitant]
     Active Substance: WATER
  12. SOMA [Concomitant]
     Active Substance: CARISOPRODOL
  13. LEVOTHYROXINE SODIUM. [Concomitant]
     Active Substance: LEVOTHYROXINE SODIUM
     Dosage: 88 MCG TABLET

REACTIONS (2)
  - Back pain [Recovered/Resolved]
  - Fatigue [Recovered/Resolved]

NARRATIVE: CASE EVENT DATE: 20200918
